FAERS Safety Report 7035814-5 (Version None)
Quarter: 2010Q4

REPORT INFORMATION
  Report Type: 
  Country: None (occurrence: None)
  Receive Date: 20101008
  Receipt Date: 20100930
  Transmission Date: 20110411
  Serious: Yes (Hospitalization, Other)
  Sender: FDA-Public Use
  Company Number: US-AMGEN-QUU432005

PATIENT
  Sex: Female
  Weight: 54 kg

DRUGS (13)
  1. EPOGEN [Suspect]
     Indication: DIALYSIS
     Dates: start: 20090301, end: 20100817
  2. ARANESP [Suspect]
     Indication: DIALYSIS
     Dates: start: 20071001
  3. TACROLIMUS [Concomitant]
     Route: 048
  4. JANUVIA [Concomitant]
     Route: 048
  5. MYFORTIC [Concomitant]
     Route: 048
  6. VITAMIN D [Concomitant]
     Route: 048
  7. LYRICA [Concomitant]
     Route: 048
  8. FOSRENOL [Concomitant]
     Route: 048
  9. CARVEDILOL [Concomitant]
     Route: 048
  10. ISOSORBIDE DINITRATE [Concomitant]
     Route: 048
  11. PREDNISOLONE [Concomitant]
     Route: 048
  12. CARTIA XT [Concomitant]
     Route: 048
  13. SIMVASTATIN [Concomitant]
     Route: 048

REACTIONS (9)
  - ASTHENIA [None]
  - BONE MARROW DISORDER [None]
  - BONE MARROW FAILURE [None]
  - FATIGUE [None]
  - LEUKOPENIA [None]
  - NORMOCHROMIC NORMOCYTIC ANAEMIA [None]
  - PANCYTOPENIA [None]
  - THERAPEUTIC RESPONSE DECREASED [None]
  - THROMBOCYTOPENIA [None]
